FAERS Safety Report 9123511 (Version 1)
Quarter: 2013Q1

REPORT INFORMATION
  Report Type: Spontaneous
  Country: US (occurrence: None)
  Receive Date: 20130131
  Receipt Date: 20130131
  Transmission Date: 20140127
  Serious: No
  Sender: FDA-Public Use
  Company Number: 001469811A

PATIENT
  Age: 22 Year
  Sex: Female

DRUGS (3)
  1. PROACTIV RENEWING CLEANSER [Suspect]
     Indication: ACNE
     Dosage: ONCE DERMAL
     Dates: start: 20130113
  2. PROACTIV REPAIRING TREATMENT [Suspect]
     Indication: ACNE
     Dosage: ONCE DERMAL
     Dates: start: 20130113
  3. PROACTIV REFINING MASK [Suspect]
     Indication: ACNE
     Dosage: ONCE DERMAL
     Dates: start: 20130113

REACTIONS (4)
  - Blister [None]
  - Rash [None]
  - Hypersensitivity [None]
  - Eye swelling [None]
